FAERS Safety Report 9158304 (Version 1)
Quarter: 2013Q1

REPORT INFORMATION
  Report Type: Spontaneous
  Country: US (occurrence: None)
  Receive Date: 20130211
  Receipt Date: 20130211
  Transmission Date: 20140127
  Serious: Yes (Other)
  Sender: FDA-Public Use
  Company Number: 2013-01674

PATIENT
  Age: 35 Year
  Sex: Male

DRUGS (5)
  1. LIDOCAINE HYDROCHLORIDE [Suspect]
     Indication: LOCAL ANAESTHESIA
     Dosage: 2 % 1:100,000 SOLUTION WITH EPINEPHRINE, LESS THAN 2 ML, OTHER???
  2. LIDOCAINE HYDROCHLORIDE [Suspect]
     Dosage: 2 % 1:100,000 SOLUTION WITH EPINEPHRINE, LESS THAN 2 ML, OTHER???
  3. LIDOCAINE HYDROCHLORIDE [Suspect]
     Dosage: 2 % 1:100,000 SOLUTION WITH EPINEPHRINE, LESS THAN 2 ML, OTHER???
  4. EPINEPHRINE [Suspect]
     Indication: LOCAL ANAESTHESIA
     Dosage: 2 % 1:100,000 SOLUTION WITH EPINEPHRINE, LESS THAN 2 ML
  5. EPINEPHRINE [Suspect]
     Dosage: 2 % 1:100,000 SOLUTION WITH EPINEPHRINE, LESS THAN 2 ML

REACTIONS (4)
  - Blindness transient [None]
  - Ophthalmoplegia [None]
  - Eye pain [None]
  - Pallor [None]
